FAERS Safety Report 13466482 (Version 4)
Quarter: 2017Q2

REPORT INFORMATION
  Report Type: Report from Study
  Country: CA (occurrence: CA)
  Receive Date: 20170421
  Receipt Date: 20170629
  Transmission Date: 20170830
  Serious: Yes (Death)
  Sender: FDA-Public Use
  Company Number: CA-PFIZER INC-2017171917

PATIENT
  Age: 22 Year
  Sex: Male

DRUGS (1)
  1. HYDROMORPHONE HYDROCHLORIDE. [Suspect]
     Active Substance: HYDROMORPHONE HYDROCHLORIDE
     Indication: BACK PAIN
     Dosage: AS NEEDED (5-10 MG, EVERY 4 HOURS, ABOUT 5-FOLD EXCESSIVE DOSE)
     Route: 042

REACTIONS (3)
  - Accidental overdose [Fatal]
  - Toxicity to various agents [Fatal]
  - Drug prescribing error [Fatal]
